FAERS Safety Report 8310750-2 (Version None)
Quarter: 2012Q2

REPORT INFORMATION
  Report Type: 
  Country: None (occurrence: None)
  Receive Date: 20120425
  Receipt Date: 20120422
  Transmission Date: 20120825
  Serious: No
  Sender: FDA-Public Use
  Company Number: US-TEVA-334780USA

PATIENT
  Sex: Female
  Weight: 49.94 kg

DRUGS (3)
  1. MYCOPHENOLATE MOFETIL (CELLCEPT) [Suspect]
     Indication: SYSTEMIC LUPUS ERYTHEMATOSUS
  2. PLAN B ONE-STEP [Suspect]
     Indication: POST COITAL CONTRACEPTION
     Dosage: 1.5 MILLIGRAM;
     Route: 048
     Dates: start: 20120421, end: 20120421
  3. PLAQUENIL [Suspect]
     Indication: SYSTEMIC LUPUS ERYTHEMATOSUS

REACTIONS (2)
  - ERYTHEMA [None]
  - SWELLING FACE [None]
